FAERS Safety Report 6126445-X (Version None)
Quarter: 2009Q1

REPORT INFORMATION
  Report Type: 
  Country: None (occurrence: None)
  Receive Date: 20090316
  Receipt Date: 20090302
  Transmission Date: 20090719
  Serious: Yes (Other)
  Sender: FDA-Public Use
  Company Number: 230005M09CHE

PATIENT
  Sex: Female

DRUGS (1)
  1. REBIF [Suspect]
     Indication: MULTIPLE SCLEROSIS
     Dates: start: 20090201

REACTIONS (6)
  - CHILLS [None]
  - FALL [None]
  - INJECTION SITE INDURATION [None]
  - MALAISE [None]
  - VERTIGO [None]
  - VOMITING [None]
